FAERS Safety Report 4781285-9 (Version None)
Quarter: 2005Q3

REPORT INFORMATION
  Report Type: 
  Country: None (occurrence: None)
  Receive Date: 20050914
  Receipt Date: 20050411
  Transmission Date: 20060218
  Serious: Yes (Death, Other)
  Sender: FDA-Public Use
  Company Number: 163-20785-05040267

PATIENT
  Age: 54 Year
  Sex: Female

DRUGS (3)
  1. THALOMID [Suspect]
     Indication: GLIOBLASTOMA MULTIFORME
     Dosage: 200 MG, DAILY, ORAL; 400 MG, DAILY, ORAL; 600 MG, DAILY, ORAL
     Route: 048
     Dates: start: 20040902, end: 20041001
  2. THALOMID [Suspect]
     Indication: GLIOBLASTOMA MULTIFORME
     Dosage: 200 MG, DAILY, ORAL; 400 MG, DAILY, ORAL; 600 MG, DAILY, ORAL
     Route: 048
     Dates: start: 20041005, end: 20041001
  3. THALOMID [Suspect]
     Indication: GLIOBLASTOMA MULTIFORME
     Dosage: 200 MG, DAILY, ORAL; 400 MG, DAILY, ORAL; 600 MG, DAILY, ORAL
     Route: 048
     Dates: start: 20041028, end: 20041201

REACTIONS (3)
  - DEATH [None]
  - DEEP VEIN THROMBOSIS [None]
  - DISEASE PROGRESSION [None]
